FAERS Safety Report 7263504-2 (Version None)
Quarter: 2011Q1

REPORT INFORMATION
  Report Type: 
  Country: None (occurrence: None)
  Receive Date: 20110130
  Receipt Date: 20101216
  Transmission Date: 20110831
  Serious: Yes (Hospitalization)
  Sender: FDA-Public Use
  Company Number: US-ABBOTT-10P-163-0691885-00

PATIENT
  Sex: Male
  Weight: 81.72 kg

DRUGS (9)
  1. AVARA [Concomitant]
     Indication: RHEUMATOID ARTHRITIS
  2. FOLIC ACID [Concomitant]
     Indication: VITAMIN SUPPLEMENTATION
  3. HUMIRA [Suspect]
     Indication: RHEUMATOID ARTHRITIS
     Dates: start: 20100901
  4. HYDROCHLOROTHIAZIDE [Concomitant]
     Indication: HYPERTENSION
  5. NEXIUM [Concomitant]
     Indication: GASTROOESOPHAGEAL REFLUX DISEASE
  6. PERCOCET [Concomitant]
     Indication: PAIN
  7. METHOTREXATE [Concomitant]
     Indication: RHEUMATOID ARTHRITIS
  8. PROCARDIA [Concomitant]
     Indication: HYPERTENSION
  9. LYRICA [Concomitant]
     Indication: ARTHRITIS

REACTIONS (6)
  - BRONCHITIS [None]
  - APHONIA [None]
  - PNEUMONIA [None]
  - COUGH [None]
  - WHEEZING [None]
  - DYSPNOEA [None]
